FAERS Safety Report 24307686 (Version 5)
Quarter: 2024Q4

REPORT INFORMATION
  Report Type: Spontaneous
  Country: US (occurrence: US)
  Receive Date: 20240911
  Receipt Date: 20241128
  Transmission Date: 20250114
  Serious: No
  Sender: PFIZER
  Company Number: US-PFIZER INC-202400249735

PATIENT
  Age: 11 Year
  Sex: Female

DRUGS (3)
  1. GENOTROPIN [Suspect]
     Active Substance: SOMATROPIN
     Dosage: 1.1 MG
  2. GENOTROPIN [Suspect]
     Active Substance: SOMATROPIN
     Dosage: 1 MG
  3. GENOTROPIN [Suspect]
     Active Substance: SOMATROPIN
     Dosage: 1.2 MG, DAILY

REACTIONS (3)
  - Device mechanical issue [Unknown]
  - Device breakage [Unknown]
  - Drug dose omission by device [Unknown]

NARRATIVE: CASE EVENT DATE: 20240801
